FAERS Safety Report 8460259-0 (Version None)
Quarter: 2012Q2

REPORT INFORMATION
  Report Type: 
  Country: None (occurrence: None)
  Receive Date: 20120323
  Receipt Date: 20111123
  Transmission Date: 20120825
  Serious: Yes (Hospitalization, Other)
  Sender: FDA-Public Use
  Company Number: 163-21880-11092694

PATIENT
  Age: 64 Year
  Sex: Female
  Weight: 65.8 kg

DRUGS (17)
  1. DRAMAMINE (DIMENHYDRINATE) (TABLETS) [Concomitant]
  2. ALDACTAZIDE (ALDACTAZIDE A) (TABLETS) [Concomitant]
  3. PHENERGAN (PROMETHAZINE HYDROCHLORIDE) (TABLETS) [Concomitant]
  4. IMITREX (SUMATRIPTAN SUCCINATE) (INJECTION) [Concomitant]
  5. ARIMIDEX (ANASTROZOLE) (TABLETS) [Concomitant]
  6. TOPAMAX [Concomitant]
  7. PREVACID [Concomitant]
  8. LOMOTIL (LOMOTIL) (TABLETS) [Concomitant]
  9. ZOLOFT [Concomitant]
  10. BENADRYL [Concomitant]
  11. KEFLEX (CEFALEXIN MONOHYDRATE) (CAPSULES) [Concomitant]
  12. HYDROCODONE/ACETAMINOPHEN (REMEDEINE) (TABLETS) [Concomitant]
  13. ADVAIR DISKUS (SERETIDE MITE) (INHALANT) [Concomitant]
  14. AXERT (ALMOTRIPTAN MALATE) (TABLETS) [Concomitant]
  15. LEVOXYL (LEVOTHYROXINE SODIUM) (TABLETS) [Concomitant]
  16. REVLIMID [Suspect]
     Indication: MYELODYSPLASTIC SYNDROME
     Dosage: 10 MG, QD, PO
     Route: 048
     Dates: start: 20110209, end: 20110801
  17. EXCEDRIN MIGRAINE (THOMAPYRIN N) (TABLETS) [Concomitant]

REACTIONS (3)
  - RASH [None]
  - HAEMOGLOBIN DECREASED [None]
  - URINARY TRACT INFECTION [None]
